FAERS Safety Report 14007138 (Version 1)
Quarter: 2017Q3

REPORT INFORMATION
  Report Type: Spontaneous
  Country: IT (occurrence: IT)
  Receive Date: 20170925
  Receipt Date: 20170925
  Transmission Date: 20171128
  Serious: Yes (Hospitalization)
  Sender: FDA-Public Use
  Company Number: IT-B.I. PHARMACEUTICALS,INC./RIDGEFIELD-2017-BI-051211

PATIENT
  Age: 85 Year
  Sex: Female

DRUGS (1)
  1. PRADAXA [Suspect]
     Active Substance: DABIGATRAN ETEXILATE MESYLATE
     Indication: ATRIAL FIBRILLATION
     Route: 065
     Dates: start: 2014

REACTIONS (11)
  - Syncope [Unknown]
  - Asthenia [Unknown]
  - Fall [Unknown]
  - Pubis fracture [Unknown]
  - Pelvic haematoma [Unknown]
  - Ilium fracture [Unknown]
  - Bladder prolapse [Unknown]
  - Haemorrhage [Not Recovered/Not Resolved]
  - Metabolic acidosis [Unknown]
  - Hypoperfusion [Unknown]
  - Haemodynamic instability [Unknown]
